FAERS Safety Report 21573151 (Version 1)
Quarter: 2022Q4

REPORT INFORMATION
  Report Type: Spontaneous
  Country: US (occurrence: US)
  Receive Date: 20221109
  Receipt Date: 20221109
  Transmission Date: 20230112
  Serious: Yes (Death, Life-Threatening, Other)
  Sender: FDA-Public Use
  Company Number: US-AMGEN-USASP2022191054

PATIENT

DRUGS (5)
  1. FILGRASTIM [Suspect]
     Active Substance: FILGRASTIM
     Indication: Prophylaxis
     Dosage: UNK
     Route: 065
  2. DECITABINE [Concomitant]
     Active Substance: DECITABINE
     Dosage: UNK
  3. VORINOSTAT [Concomitant]
     Active Substance: VORINOSTAT
     Dosage: UNK
  4. FLUDARABINE PHOSPHATE [Concomitant]
     Active Substance: FLUDARABINE PHOSPHATE
  5. CYTARABINE [Concomitant]
     Active Substance: CYTARABINE
     Dosage: UNK

REACTIONS (24)
  - Death [Fatal]
  - Acute kidney injury [Fatal]
  - Rhinovirus infection [Fatal]
  - Intra-abdominal haemorrhage [Fatal]
  - Acidosis [Fatal]
  - Respiratory failure [Fatal]
  - Fungal tracheitis [Unknown]
  - Colitis [Unknown]
  - Hypoxia [Unknown]
  - Sepsis [Unknown]
  - Upper respiratory tract infection [Unknown]
  - Fungaemia [Unknown]
  - Candida infection [Unknown]
  - Pneumonia [Unknown]
  - Lymph gland infection [Unknown]
  - Disease progression [Unknown]
  - Bacteraemia [Unknown]
  - Febrile neutropenia [Unknown]
  - Blood bilirubin increased [Unknown]
  - Meningitis bacterial [Unknown]
  - Haematotoxicity [Unknown]
  - Streptococcal bacteraemia [Unknown]
  - Alanine aminotransferase increased [Unknown]
  - Aspartate aminotransferase increased [Unknown]
